FAERS Safety Report 8886682 (Version 5)
Quarter: 2013Q2

REPORT INFORMATION
  Report Type: Spontaneous
  Country: GB (occurrence: GB)
  Receive Date: 20121105
  Receipt Date: 20130627
  Transmission Date: 20140414
  Serious: Yes (Hospitalization, Other)
  Sender: FDA-Public Use
  Company Number: PHFR2012GB005721

PATIENT
  Age: 76 Year
  Sex: Male

DRUGS (11)
  1. CLOZARIL [Suspect]
     Indication: SCHIZOPHRENIA
     Dosage: UNK
     Dates: start: 20091012
  2. CLOZARIL [Suspect]
     Dosage: 12.5 MG, QD
  3. CLOZARIL [Suspect]
     Dosage: 75 MG, UNK
  4. TRIMETHOPRIM [Concomitant]
     Dosage: 100 MG, UNK
     Route: 048
  5. TEMAZEPAM [Concomitant]
     Indication: INSOMNIA
     Dosage: 10 MG, UNK
     Route: 048
  6. TRAMADOL [Concomitant]
     Dosage: 50 MG, PRN
     Route: 048
  7. PARACETAMOL [Concomitant]
     Dosage: 500 MG, UNK
  8. PARACETAMOL [Concomitant]
     Dosage: 1 G, UNK
  9. FOLIC ACID [Concomitant]
     Dosage: 5 MG, UNK
     Route: 048
  10. CO-CARELDOPA [Concomitant]
     Indication: PARKINSON^S DISEASE
     Dosage: 25 MG, TID
     Route: 048
  11. CO-CARELDOPA [Concomitant]
     Dosage: 100 MG, TID
     Route: 048

REACTIONS (4)
  - Transient ischaemic attack [Not Recovered/Not Resolved]
  - Hypotension [Recovering/Resolving]
  - General physical health deterioration [Not Recovered/Not Resolved]
  - Dizziness [Unknown]
